FAERS Safety Report 9703001 (Version 1)
Quarter: 2013Q4

REPORT INFORMATION
  Report Type: Spontaneous
  Country: DE (occurrence: DE)
  Receive Date: 20131122
  Receipt Date: 20131122
  Transmission Date: 20140711
  Serious: Yes (Congenital Anomaly)
  Sender: FDA-Public Use
  Company Number: DE-ROCHE-1305064

PATIENT
  Sex: Male

DRUGS (2)
  1. RIVOTRIL [Suspect]
     Indication: EPILEPSY
     Route: 064
  2. CARBAMAZEPINA [Suspect]
     Indication: EPILEPSY
     Route: 064

REACTIONS (2)
  - Polydactyly [Unknown]
  - Polydactyly [Unknown]
